FAERS Safety Report 5710941-0 (Version None)
Quarter: 2008Q2

REPORT INFORMATION
  Report Type: 
  Country: None (occurrence: None)
  Receive Date: 20080421
  Receipt Date: 20080411
  Transmission Date: 20081010
  Serious: Yes (Other)
  Sender: FDA-Public Use
  Company Number: PHHY2008JP05503

PATIENT
  Sex: Female

DRUGS (3)
  1. VOLTAREN [Suspect]
     Indication: ANALGESIA
     Dosage: 25 MG, 2 TABLETS/ DAY
     Route: 048
     Dates: start: 20071212, end: 20071215
  2. VOLTAREN [Suspect]
     Route: 048
     Dates: start: 20040101
  3. OZEX [Concomitant]
     Route: 048
     Dates: start: 20071212

REACTIONS (4)
  - HAEMATURIA [None]
  - PALLOR [None]
  - RENAL HAEMORRHAGE [None]
  - TOOTH EXTRACTION [None]
